FAERS Safety Report 14540272 (Version 5)
Quarter: 2018Q3

REPORT INFORMATION
  Report Type: Report from Study
  Country: US (occurrence: US)
  Receive Date: 20180216
  Receipt Date: 20180817
  Transmission Date: 20181010
  Serious: Yes (Other)
  Sender: FDA-Public Use
  Company Number: US-JNJFOC-20161208062

PATIENT
  Age: 53 Year
  Sex: Male

DRUGS (9)
  1. ZITHROMAX [Suspect]
     Active Substance: AZITHROMYCIN DIHYDRATE
     Indication: INFLUENZA LIKE ILLNESS
  2. IMBRUVICA [Suspect]
     Active Substance: IBRUTINIB
     Indication: CHRONIC LYMPHOCYTIC LEUKAEMIA
     Route: 048
     Dates: start: 20161128, end: 20180612
  3. ZITHROMAX [Suspect]
     Active Substance: AZITHROMYCIN DIHYDRATE
     Indication: BRONCHITIS
  4. BACTRIM [Concomitant]
     Active Substance: SULFAMETHOXAZOLE\TRIMETHOPRIM
     Indication: PROPHYLAXIS
  5. IMBRUVICA [Suspect]
     Active Substance: IBRUTINIB
     Indication: CHRONIC LYMPHOCYTIC LEUKAEMIA
     Route: 048
     Dates: start: 20161005, end: 20170209
  6. IMBRUVICA [Suspect]
     Active Substance: IBRUTINIB
     Indication: CHRONIC LYMPHOCYTIC LEUKAEMIA
     Route: 048
     Dates: start: 20170213
  7. LORAZEPAM. [Concomitant]
     Active Substance: LORAZEPAM
  8. ZITHROMAX [Suspect]
     Active Substance: AZITHROMYCIN DIHYDRATE
     Indication: BODY TEMPERATURE INCREASED
  9. ACYCLOVIR. [Concomitant]
     Active Substance: ACYCLOVIR
     Indication: PROPHYLAXIS

REACTIONS (35)
  - Dry skin [Not Recovered/Not Resolved]
  - Impaired healing [Unknown]
  - Muscle tightness [Unknown]
  - Platelet count abnormal [Recovering/Resolving]
  - Tendonitis [Unknown]
  - Skin abrasion [Not Recovered/Not Resolved]
  - Chest pain [Not Recovered/Not Resolved]
  - Rash pustular [Not Recovered/Not Resolved]
  - Blood blister [Unknown]
  - Bone pain [Unknown]
  - Musculoskeletal pain [Not Recovered/Not Resolved]
  - Medical device site irritation [Not Recovered/Not Resolved]
  - Dyspnoea [Not Recovered/Not Resolved]
  - Rash macular [Not Recovered/Not Resolved]
  - Myalgia [Not Recovered/Not Resolved]
  - Nausea [Unknown]
  - Acne [Not Recovered/Not Resolved]
  - Bleeding time prolonged [Unknown]
  - Papule [Unknown]
  - Arthralgia [Not Recovered/Not Resolved]
  - White blood cell count decreased [Recovering/Resolving]
  - Anxiety [Not Recovered/Not Resolved]
  - Haemorrhage [Unknown]
  - Osteochondroma [Recovering/Resolving]
  - Wound [Unknown]
  - Temporomandibular joint syndrome [Unknown]
  - Stress [Not Recovered/Not Resolved]
  - Onychomycosis [Unknown]
  - Stomatitis [Not Recovered/Not Resolved]
  - Sinusitis [Recovered/Resolved]
  - Nasopharyngitis [Not Recovered/Not Resolved]
  - Eustachian tube dysfunction [Unknown]
  - Eyelid infection [Recovering/Resolving]
  - Muscle spasms [Not Recovered/Not Resolved]
  - Back pain [Unknown]

NARRATIVE: CASE EVENT DATE: 201704
